FAERS Safety Report 6136055-6 (Version None)
Quarter: 2009Q1

REPORT INFORMATION
  Report Type: 
  Country: None (occurrence: None)
  Receive Date: 20090325
  Receipt Date: 20090308
  Transmission Date: 20090719
  Serious: Yes (Other)
  Sender: FDA-Public Use
  Company Number: 2007S1005553

PATIENT
  Age: 61 Year
  Sex: Male
  Weight: 78.9259 kg

DRUGS (8)
  1. SODIUM PHOSPHATES [Suspect]
     Indication: COLONOSCOPY
     Dosage: 90 ML; TOTAL; PO
     Route: 048
     Dates: start: 20050816, end: 20050816
  2. ATENOLOL [Concomitant]
  3. LIPITOR [Concomitant]
  4. LISINOPRIL [Concomitant]
  5. FOLIC ACID [Concomitant]
  6. ASPIRIN [Concomitant]
  7. ALEVE [Concomitant]
  8. DULCOLAX/00064401 [Concomitant]

REACTIONS (5)
  - DEHYDRATION [None]
  - HYPERPHOSPHATAEMIA [None]
  - METABOLIC ACIDOSIS [None]
  - RENAL FAILURE ACUTE [None]
  - RENAL FAILURE CHRONIC [None]
